FAERS Safety Report 25947179 (Version 1)
Quarter: 2025Q4

REPORT INFORMATION
  Report Type: Spontaneous
  Country: CN (occurrence: CN)
  Receive Date: 20251022
  Receipt Date: 20251022
  Transmission Date: 20260117
  Serious: Yes (Other)
  Sender: RANBAXY
  Company Number: CN-SUN PHARMACEUTICAL INDUSTRIES LTD-2025R1-528092

PATIENT
  Age: 28 Year
  Sex: Female

DRUGS (2)
  1. QUETIAPINE [Suspect]
     Active Substance: QUETIAPINE
     Indication: Antipsychotic therapy
     Dosage: UNK 200 MG/NIGHT
     Route: 065
  2. MEGESTROL [Suspect]
     Active Substance: MEGESTROL
     Indication: Product used for unknown indication
     Dosage: UNK 160 MG TWICE DAILY
     Route: 065

REACTIONS (1)
  - Secondary adrenocortical insufficiency [Recovering/Resolving]
